FAERS Safety Report 6207516-6 (Version None)
Quarter: 2009Q2

REPORT INFORMATION
  Report Type: 
  Country: None (occurrence: None)
  Receive Date: 20090526
  Receipt Date: 20090511
  Transmission Date: 20091009
  Serious: Yes (Hospitalization, Other)
  Sender: FDA-Public Use
  Company Number: 1000005524

PATIENT
  Age: 41 Year
  Sex: Female

DRUGS (1)
  1. CITALOPRAM HYDROBROMIDE [Suspect]
     Indication: PANIC ATTACK
     Dosage: 20 MG (20 MG, 1 IN 1 D)., ORAL
     Route: 048
     Dates: start: 20030101

REACTIONS (1)
  - NEUROENDOCRINE TUMOUR [None]
